FAERS Safety Report 20480721 (Version 1)
Quarter: 2022Q1

REPORT INFORMATION
  Report Type: Report from Study
  Country: MX (occurrence: MX)
  Receive Date: 20220216
  Receipt Date: 20220216
  Transmission Date: 20220423
  Serious: Yes (Death, Other)
  Sender: FDA-Public Use
  Company Number: MX-NOVARTISPH-NVSC2022MX034179

PATIENT
  Sex: Female
  Weight: 5 kg

DRUGS (1)
  1. CYCLOSPORINE [Suspect]
     Active Substance: CYCLOSPORINE
     Indication: Blood disorder
     Dosage: UNK
     Route: 065

REACTIONS (7)
  - Blood disorder [Fatal]
  - Pneumothorax [Fatal]
  - Hepatomegaly [Fatal]
  - Haemophagocytic lymphohistiocytosis [Fatal]
  - COVID-19 pneumonia [Unknown]
  - Product use issue [Unknown]
  - Product use in unapproved indication [Unknown]
